FAERS Safety Report 9104075 (Version 2)
Quarter: 2013Q1

REPORT INFORMATION
  Report Type: Spontaneous
  Country: NL (occurrence: NL)
  Receive Date: 20130116
  Receipt Date: 20130116
  Transmission Date: 20140127
  Serious: Yes (Other)
  Sender: FDA-Public Use
  Company Number: PHHY2012NL063419

PATIENT
  Sex: Female

DRUGS (4)
  1. ZOMETA [Suspect]
     Indication: METASTASIS
     Dosage: 4 MG/100 ML PER 28 DAYS
     Route: 042
  2. ZOMETA [Suspect]
     Dosage: 4 MG/100 ML PER 28 DAYS
     Route: 042
     Dates: start: 20100830
  3. ZOMETA [Suspect]
     Dosage: 4 MG/100 ML PER 28 DAYS
     Route: 042
     Dates: start: 20120627
  4. ZOMETA [Suspect]
     Dosage: 4 MG/100 ML PER 28 DAYS
     Route: 042
     Dates: start: 20120723

REACTIONS (2)
  - General physical health deterioration [Not Recovered/Not Resolved]
  - Back pain [Not Recovered/Not Resolved]
